FAERS Safety Report 5154155-4 (Version None)
Quarter: 2006Q4

REPORT INFORMATION
  Report Type: 
  Country: None (occurrence: None)
  Receive Date: 20061116
  Receipt Date: 20061116
  Transmission Date: 20070319
  Serious: Yes (Hospitalization, Disabling)
  Sender: FDA-Public Use
  Company Number: None

PATIENT
  Sex: Female
  Weight: 76.2043 kg

DRUGS (6)
  1. SWIM EAR [Suspect]
     Indication: EAR DISORDER
     Dosage: 4 DROPS AT ONE TIME OTIC
     Route: 001
     Dates: start: 20060308
  2. NORVASC [Concomitant]
  3. SYNTHROID [Concomitant]
  4. ASPIRIN [Concomitant]
  5. NEXIUM [Concomitant]
  6. VALIUM [Concomitant]

REACTIONS (4)
  - BALANCE DISORDER [None]
  - DEAFNESS TRANSITORY [None]
  - EAR DISCOMFORT [None]
  - ERYTHEMA [None]
